FAERS Safety Report 7964428-5 (Version None)
Quarter: 2011Q4

REPORT INFORMATION
  Report Type: 
  Country: None (occurrence: None)
  Receive Date: 20111208
  Receipt Date: 20111205
  Transmission Date: 20120403
  Serious: Yes (Hospitalization, Other)
  Sender: FDA-Public Use
  Company Number: JP-PFIZER INC-2011282231

PATIENT
  Age: 67 Year
  Sex: Male
  Weight: 54 kg

DRUGS (16)
  1. VARENICLINE TARTRATE [Suspect]
     Indication: SMOKING CESSATION THERAPY
     Dosage: 0.5 MG, 1X/DAY
     Route: 048
     Dates: start: 20111031, end: 20111103
  2. METHYCOOL [Concomitant]
     Dosage: 500 UG, 3X/DAY
     Route: 048
  3. BISOPROLOL FUMARATE [Concomitant]
     Dosage: 2.5 MG, 1X/DAY
     Route: 048
  4. VERAPAMIL HCL [Concomitant]
     Dosage: 80 MG, 3X/DAY
     Route: 048
  5. SEVEN EP [Concomitant]
     Dosage: THREE TIMES DAILY
     Route: 048
  6. JUVELA [Concomitant]
     Dosage: 50 MG, 3X/DAY
     Route: 048
  7. ZYRTEC [Concomitant]
     Dosage: 10 MG, 1X/DAY
     Route: 048
  8. OMEPROTON [Concomitant]
     Dosage: 10 MG, 2X/DAY
     Route: 048
  9. MUCOSOLVAN [Concomitant]
     Dosage: 15 MG, 3X/DAY
     Route: 048
  10. DEPAS [Concomitant]
     Dosage: 0.5 MG, 1X/DAY
     Route: 048
  11. VALPROATE SODIUM [Concomitant]
     Dosage: 200 MG, 3X/DAY
     Route: 048
     Dates: start: 20070101
  12. WARFARIN [Concomitant]
     Dosage: 2 MG, 1X/DAY
     Route: 048
  13. DEXTROMETHORPHAN HYDROBROMIDE [Concomitant]
     Dosage: 15 MG, 4X/DAY
     Route: 048
  14. GABAPENTIN [Concomitant]
     Dosage: 400 MG, 3X/DAY
     Route: 048
     Dates: start: 20070101
  15. ASPIRIN [Concomitant]
     Dosage: 100 MG, 1X/DAY
     Route: 048
     Dates: start: 20070101
  16. AMOBAN [Concomitant]
     Dosage: 7.5 MG, 1X/DAY
     Route: 048

REACTIONS (5)
  - ANGINA PECTORIS [None]
  - RHABDOMYOLYSIS [None]
  - OEDEMA PERIPHERAL [None]
  - ASPARTATE AMINOTRANSFERASE INCREASED [None]
  - ALANINE AMINOTRANSFERASE INCREASED [None]
